FAERS Safety Report 6903816-2 (Version None)
Quarter: 2010Q3

REPORT INFORMATION
  Report Type: 
  Country: None (occurrence: None)
  Receive Date: 20100804
  Receipt Date: 20090104
  Transmission Date: 20110219
  Serious: No
  Sender: FDA-Public Use
  Company Number: US-PFIZER INC-2009152087

PATIENT
  Sex: Female
  Weight: 90.7 kg

DRUGS (8)
  1. LYRICA [Suspect]
     Indication: PAIN
     Dosage: 75 MG, 3X/DAY
     Dates: start: 20080101
  2. CLINDAMYCIN PHOSPHATE [Suspect]
     Indication: INFECTION
     Dosage: UNK
  3. AMITIZA [Concomitant]
     Indication: IMPAIRED GASTRIC EMPTYING
     Dosage: UNK
  4. TAMOXIFEN CITRATE [Concomitant]
     Indication: NEOPLASM MALIGNANT
     Dosage: UNK
  5. VITAMIN D [Concomitant]
     Dosage: 50000 IU, WEEKLY
  6. DIAZEPAM [Concomitant]
     Dosage: UNK
  7. MAXZIDE [Concomitant]
     Dosage: UNK
  8. ZEGERID [Concomitant]
     Indication: IMPAIRED GASTRIC EMPTYING
     Dosage: UNK

REACTIONS (3)
  - OEDEMA PERIPHERAL [None]
  - OESOPHAGEAL PAIN [None]
  - PERIODONTAL INFECTION [None]
